FAERS Safety Report 16587807 (Version 1)
Quarter: 2019Q3

REPORT INFORMATION
  Report Type: Report from Study
  Country: US (occurrence: US)
  Receive Date: 20190717
  Receipt Date: 20190717
  Transmission Date: 20191004
  Serious: No
  Sender: FDA-Public Use
  Company Number: US-ALLERGAN-1928795US

PATIENT
  Age: 37 Year
  Sex: Female
  Weight: 99.32 kg

DRUGS (4)
  1. BLINDED CARIPRAZINE HCL 3MG CAP (TBD) [Suspect]
     Active Substance: CARIPRAZINE HYDROCHLORIDE
     Indication: BIPOLAR DISORDER
     Dosage: UNK, QD
     Route: 048
     Dates: start: 20190509, end: 20190521
  2. CARIPRAZINE HYDROCHLORIDE [Concomitant]
     Active Substance: CARIPRAZINE HYDROCHLORIDE
     Indication: BIPOLAR DISORDER
     Dosage: 30 MG, QD
     Route: 048
     Dates: start: 20190222, end: 20190508
  3. BLINDED CARIPRAZINE HCL 1.5MG CAP (TBD) [Suspect]
     Active Substance: CARIPRAZINE HYDROCHLORIDE
     Indication: BIPOLAR DISORDER
     Dosage: UNK, QD
     Route: 048
     Dates: start: 20190509, end: 20190521
  4. BLINDED PLACEBO [Suspect]
     Active Substance: INVESTIGATIONAL PRODUCT
     Indication: BIPOLAR DISORDER
     Dosage: UNK, QD
     Route: 048
     Dates: start: 20190509, end: 20190521

REACTIONS (1)
  - Cataract [Not Recovered/Not Resolved]

NARRATIVE: CASE EVENT DATE: 20190513
